FAERS Safety Report 18175431 (Version 6)
Quarter: 2022Q3

REPORT INFORMATION
  Report Type: Spontaneous
  Country: CO (occurrence: CO)
  Receive Date: 20200820
  Receipt Date: 20220713
  Transmission Date: 20221027
  Serious: Yes (Hospitalization, Other)
  Sender: FDA-Public Use
  Company Number: CO-GLAXOSMITHKLINE-CO2020AMR161143

PATIENT

DRUGS (9)
  1. BELIMUMAB [Suspect]
     Active Substance: BELIMUMAB
     Indication: Systemic lupus erythematosus
     Dosage: UNK
     Dates: start: 20200729
  2. BELIMUMAB [Suspect]
     Active Substance: BELIMUMAB
     Dosage: 800 MG
     Dates: start: 20200812
  3. ACETAMINOPHEN\CODEINE PHOSPHATE [Concomitant]
     Active Substance: ACETAMINOPHEN\CODEINE PHOSPHATE
     Indication: Product used for unknown indication
     Dosage: UNK
  4. FOLIC ACID [Concomitant]
     Active Substance: FOLIC ACID
     Indication: Product used for unknown indication
     Dosage: UNK
  5. CALCIUM [Concomitant]
     Active Substance: CALCIUM
     Indication: Product used for unknown indication
     Dosage: UNK
  6. PREDNISOLONE [Concomitant]
     Active Substance: PREDNISOLONE
     Indication: Product used for unknown indication
     Dosage: 5 MG
  7. AZATHIOPRINE [Concomitant]
     Active Substance: AZATHIOPRINE
     Indication: Product used for unknown indication
     Dosage: 50 MG
  8. WARFARIN [Concomitant]
     Active Substance: WARFARIN
     Indication: Product used for unknown indication
     Dosage: 5 MG
  9. CYCLOSPORINE [Concomitant]
     Active Substance: CYCLOSPORINE
     Indication: Product used for unknown indication
     Dosage: 100 MG

REACTIONS (15)
  - Deep vein thrombosis [Not Recovered/Not Resolved]
  - Superficial vein thrombosis [Not Recovered/Not Resolved]
  - Oedema peripheral [Recovering/Resolving]
  - Pain [Not Recovered/Not Resolved]
  - Intermittent claudication [Not Recovered/Not Resolved]
  - Peripheral coldness [Not Recovered/Not Resolved]
  - Erythema [Recovering/Resolving]
  - Ecchymosis [Not Recovered/Not Resolved]
  - Capillary nail refill test abnormal [Unknown]
  - Myalgia [Not Recovered/Not Resolved]
  - Feeling cold [Not Recovered/Not Resolved]
  - Cyanosis [Not Recovered/Not Resolved]
  - Pedal pulse abnormal [Unknown]
  - Hypercoagulation [Unknown]
  - Pain in extremity [Not Recovered/Not Resolved]

NARRATIVE: CASE EVENT DATE: 20200824
